FAERS Safety Report 20697365 (Version 5)
Quarter: 2025Q3

REPORT INFORMATION
  Report Type: Report from Study
  Country: US (occurrence: US)
  Receive Date: 20220411
  Receipt Date: 20250715
  Transmission Date: 20251021
  Serious: Yes (Hospitalization)
  Sender: TAKEDA
  Company Number: US-TAKEDA-2022TUS023359

PATIENT
  Sex: Female

DRUGS (4)
  1. MARIBAVIR [Suspect]
     Active Substance: MARIBAVIR
     Indication: Cytomegalovirus infection
  2. MARIBAVIR [Suspect]
     Active Substance: MARIBAVIR
     Indication: Lung transplant
     Dosage: 400 MILLIGRAM, BID
  3. MARIBAVIR [Suspect]
     Active Substance: MARIBAVIR
     Dosage: 400 MILLIGRAM, BID
     Dates: start: 20250510
  4. MARIBAVIR [Suspect]
     Active Substance: MARIBAVIR

REACTIONS (4)
  - Blood glucose increased [Unknown]
  - Product distribution issue [Unknown]
  - Product dose omission issue [Unknown]
  - Taste disorder [Not Recovered/Not Resolved]
